FAERS Safety Report 6908297-0 (Version None)
Quarter: 2010Q3

REPORT INFORMATION
  Report Type: 
  Country: None (occurrence: None)
  Receive Date: 20100716
  Receipt Date: 20100209
  Transmission Date: 20110219
  Serious: Yes (Other)
  Sender: FDA-Public Use
  Company Number: 2010018505

PATIENT
  Age: 57 Year
  Sex: Female
  Weight: 113.4 kg

DRUGS (2)
  1. CELEBREX [Suspect]
     Indication: KNEE ARTHROPLASTY
     Dosage: ORAL
     Route: 048
     Dates: start: 20100110, end: 20100120
  2. LYRICA [Suspect]
     Indication: KNEE ARTHROPLASTY
     Dosage: ORAL
     Route: 048
     Dates: start: 20100110, end: 20100123

REACTIONS (7)
  - BLISTER [None]
  - EXCORIATION [None]
  - HYPERKERATOSIS [None]
  - LICHENIFICATION [None]
  - PRURITUS [None]
  - RASH [None]
  - URTICARIA [None]
